FAERS Safety Report 20233017 (Version 1)
Quarter: 2021Q4

REPORT INFORMATION
  Report Type: Spontaneous
  Country: US (occurrence: None)
  Receive Date: 20211225
  Receipt Date: 20211225
  Transmission Date: 20220304
  Serious: Yes (Hospitalization, Other)
  Sender: FDA-Public Use
  Company Number: None

PATIENT
  Age: 59 Year
  Sex: Female
  Weight: 63 kg

DRUGS (4)
  1. AMLODIPINE BESYLATE [Suspect]
     Active Substance: AMLODIPINE BESYLATE
     Indication: Hypertension
     Dosage: FREQUENCY : DAILY;?
     Route: 048
  2. CYCLOBENZAPRINE [Suspect]
     Active Substance: CYCLOBENZAPRINE
     Indication: Neuralgia
     Dosage: FREQUENCY : AS NEEDED;?
     Route: 048
  3. EQUATE IBUPROFEN [Concomitant]
     Active Substance: IBUPROFEN
  4. EQUATE LORATADINE [Concomitant]

REACTIONS (11)
  - Suspected product contamination [None]
  - Choking sensation [None]
  - Product physical issue [None]
  - Tongue discomfort [None]
  - Pain [None]
  - Tongue discolouration [None]
  - Full blood count abnormal [None]
  - Urine analysis abnormal [None]
  - Product commingling [None]
  - Dyspepsia [None]
  - Product tampering [None]

NARRATIVE: CASE EVENT DATE: 20211027
